FAERS Safety Report 18378265 (Version 1)
Quarter: 2020Q4

REPORT INFORMATION
  Report Type: Spontaneous
  Country: US (occurrence: US)
  Receive Date: 20201013
  Receipt Date: 20201013
  Transmission Date: 20210114
  Serious: No
  Sender: FDA-Public Use
  Company Number: US-SA-2020SA284566

PATIENT

DRUGS (2)
  1. PLAVIX [Suspect]
     Active Substance: CLOPIDOGREL BISULFATE
     Indication: PRODUCT USED FOR UNKNOWN INDICATION
     Route: 065
  2. XTANDI [Suspect]
     Active Substance: ENZALUTAMIDE
     Indication: PROSTATE CANCER
     Dosage: 80 MG, QD
     Route: 048
     Dates: start: 202001

REACTIONS (6)
  - Nerve compression [Unknown]
  - Neck pain [Unknown]
  - Arthralgia [Unknown]
  - Drug interaction [Unknown]
  - Pain in extremity [Unknown]
  - Underdose [Unknown]

NARRATIVE: CASE EVENT DATE: 20200123
